FAERS Safety Report 9554407 (Version 5)
Quarter: 2014Q1

REPORT INFORMATION
  Report Type: Report from Study
  Country: JP (occurrence: JP)
  Receive Date: 20130925
  Receipt Date: 20140212
  Transmission Date: 20141002
  Serious: Yes (Death, Life-Threatening, Other)
  Sender: FDA-Public Use
  Company Number: JP-OTSUKA-JP-2013-13349

PATIENT
  Age: 77 Year
  Sex: Female
  Weight: 30 kg

DRUGS (4)
  1. SAMSCA [Suspect]
     Indication: FLUID RETENTION
     Dosage: 15 MG MILLIGRAM(S), QAM
     Route: 048
     Dates: start: 20130731, end: 20130803
  2. LASIX [Concomitant]
     Indication: CARDIAC FAILURE
     Dosage: 40 MG MILLIGRAM(S), DAILY DOSE
     Route: 042
  3. WYSTAL [Concomitant]
     Indication: PNEUMONIA
     Dosage: 2 G GRAM(S), DAILY DOSE
     Route: 042
  4. WYSTAL [Concomitant]
     Indication: PNEUMONIA

REACTIONS (4)
  - Hypernatraemia [Not Recovered/Not Resolved]
  - Pneumonia [Fatal]
  - Renal disorder [Not Recovered/Not Resolved]
  - Liver disorder [Not Recovered/Not Resolved]
